FAERS Safety Report 5994852-1 (Version None)
Quarter: 2008Q4

REPORT INFORMATION
  Report Type: 
  Country: None (occurrence: None)
  Receive Date: 20081212
  Receipt Date: 20081205
  Transmission Date: 20090506
  Serious: Yes (Other)
  Sender: FDA-Public Use
  Company Number: US-JNJCH-2008056856

PATIENT
  Age: 17 Year
  Sex: Female
  Weight: 52.2 kg

DRUGS (1)
  1. SUDAFED 12 HOUR [Suspect]
     Indication: EUSTACHIAN TUBE DYSFUNCTION
     Dosage: TEXT:UNSPECIFIED
     Route: 048
     Dates: start: 20080801, end: 20081015

REACTIONS (1)
  - RAYNAUD'S PHENOMENON [None]
